FAERS Safety Report 15618750 (Version 1)
Quarter: 2018Q4

REPORT INFORMATION
  Report Type: Spontaneous
  Country: US (occurrence: US)
  Receive Date: 20181113
  Receipt Date: 20181113
  Transmission Date: 20190205
  Serious: Yes (Other)
  Sender: FDA-Public Use
  Company Number: None

PATIENT
  Age: 43 Year
  Sex: Female

DRUGS (1)
  1. BUPRENORPHINE NALOXONE, 8-2 MG [Suspect]
     Active Substance: BUPRENORPHINE\NALOXONE
     Indication: DRUG DEPENDENCE
     Route: 048
     Dates: start: 20181101, end: 20181113

REACTIONS (2)
  - Drug dependence [None]
  - Therapeutic response decreased [None]

NARRATIVE: CASE EVENT DATE: 20181113
